FAERS Safety Report 4487114-5 (Version None)
Quarter: 2004Q4

REPORT INFORMATION
  Report Type: 
  Country: None (occurrence: None)
  Receive Date: 20041027
  Receipt Date: 20041022
  Transmission Date: 20050328
  Serious: Yes (Other)
  Sender: FDA-Public Use
  Company Number: DE-GLAXOSMITHKLINE-D0045017A

PATIENT
  Sex: Male

DRUGS (2)
  1. ZEFFIX [Suspect]
     Route: 048
     Dates: start: 20041001
  2. DECORTIN [Concomitant]
     Dosage: 30MG PER DAY
     Route: 048

REACTIONS (3)
  - DYSPNOEA [None]
  - LARYNGEAL OEDEMA [None]
  - OEDEMA MUCOSAL [None]
